FAERS Safety Report 24933699 (Version 1)
Quarter: 2025Q1

REPORT INFORMATION
  Report Type: Spontaneous
  Country: JP (occurrence: JP)
  Receive Date: 20250206
  Receipt Date: 20250206
  Transmission Date: 20250409
  Serious: Yes (Death, Life-Threatening, Hospitalization, Other)
  Sender: EXELIXIS
  Company Number: JP-TAKEDA-2024TJP001875AA

PATIENT
  Age: 8 Decade
  Sex: Male

DRUGS (1)
  1. CABOMETYX [Suspect]
     Active Substance: CABOZANTINIB S-MALATE
     Indication: Renal cell carcinoma
     Dosage: 60 MG, QD
     Route: 048
     Dates: start: 20230914, end: 20231207

REACTIONS (1)
  - Renal cell carcinoma [Fatal]

NARRATIVE: CASE EVENT DATE: 20231207
